FAERS Safety Report 9536189 (Version 1)
Quarter: 2013Q2

REPORT INFORMATION
  Report Type: Spontaneous
  Country: US (occurrence: None)
  Receive Date: 20130418
  Receipt Date: 20130418
  Transmission Date: 20140414
  Serious: Yes (Disabling)
  Sender: FDA-Public Use
  Company Number: 1301USA003709

PATIENT
  Sex: 0

DRUGS (1)
  1. SINGULAIR [Suspect]
     Dosage: 10 MG, UNK

REACTIONS (2)
  - Tremor [None]
  - Insomnia [None]
